FAERS Safety Report 21512534 (Version 1)
Quarter: 2022Q4

REPORT INFORMATION
  Report Type: Spontaneous
  Country: US (occurrence: US)
  Receive Date: 20221027
  Receipt Date: 20221027
  Transmission Date: 20230112
  Serious: Yes (Other)
  Sender: FDA-Public Use
  Company Number: US-ALS-000801

PATIENT
  Age: 36 Year
  Sex: Male

DRUGS (10)
  1. QUETIAPINE [Interacting]
     Active Substance: QUETIAPINE
     Indication: Product used for unknown indication
     Dosage: 300 MG NIGHTLY
     Route: 065
  2. VENLAFAXINE [Interacting]
     Active Substance: VENLAFAXINE HYDROCHLORIDE
     Indication: Product used for unknown indication
     Dosage: 150 MG DAILY
     Route: 065
  3. BUPRENORPHINE [Concomitant]
     Active Substance: BUPRENORPHINE
     Indication: Opioid sparing treatment
     Dosage: 8 MG ORAL IN THE EVENING (DAY 1).
     Route: 048
  4. NALOXONE [Concomitant]
     Active Substance: NALOXONE
     Indication: Opioid sparing treatment
     Dosage: 2 MG ORAL
     Route: 048
  5. BUPRENORPHINE [Concomitant]
     Active Substance: BUPRENORPHINE
     Indication: Opioid sparing treatment
     Dosage: AFTER 2 HOURS, 4 MG ORAL AS INSTRUCTED.
     Route: 048
  6. BUPRENORPHINE [Concomitant]
     Active Substance: BUPRENORPHINE
     Indication: Opioid sparing treatment
     Dosage: 12 MG ORAL DAILY UNTIL 1 WEEK.
     Route: 048
  7. BUPRENORPHINE [Concomitant]
     Active Substance: BUPRENORPHINE
     Indication: Opioid sparing treatment
     Dosage: 16 MG ORAL DAILY
     Route: 048
  8. NALOXONE [Concomitant]
     Active Substance: NALOXONE
     Indication: Opioid sparing treatment
     Dosage: AFTER 2 HOURS, 1 MG ORAL AS INSTRUCTED.
     Route: 048
  9. NALOXONE [Concomitant]
     Active Substance: NALOXONE
     Indication: Opioid sparing treatment
     Dosage: 3 MG ORAL DAILY UNTIL 1 WEEK
     Route: 048
  10. NALOXONE [Concomitant]
     Active Substance: NALOXONE
     Indication: Opioid sparing treatment
     Dosage: 4 MG ORAL DAILY
     Route: 048

REACTIONS (3)
  - Serotonin syndrome [Unknown]
  - Electrocardiogram QT prolonged [Recovered/Resolved]
  - Drug interaction [Unknown]
